FAERS Safety Report 14763822 (Version 1)
Quarter: 2018Q2

REPORT INFORMATION
  Report Type: Spontaneous
  Country: US (occurrence: US)
  Receive Date: 20180410
  Receipt Date: 20180410
  Transmission Date: 20180711
  Serious: Yes (Life-Threatening, Other)
  Sender: FDA-Public Use
  Company Number: None

PATIENT
  Age: 35 Year
  Sex: Female
  Weight: 113.4 kg

DRUGS (1)
  1. MIRENA [Suspect]
     Active Substance: LEVONORGESTREL
     Dates: start: 20170601

REACTIONS (7)
  - Pregnancy with contraceptive device [None]
  - Drug ineffective [None]
  - Ectopic pregnancy [None]
  - Pain [None]
  - Muscle spasms [None]
  - Emotional distress [None]
  - Vaginal haemorrhage [None]

NARRATIVE: CASE EVENT DATE: 20180403
